FAERS Safety Report 5042073-1 (Version None)
Quarter: 2006Q2

REPORT INFORMATION
  Report Type: 
  Country: None (occurrence: None)
  Receive Date: 20060630
  Receipt Date: 20060620
  Transmission Date: 20061013
  Serious: Yes (Death, Life-Threatening, Hospitalization, Other)
  Sender: FDA-Public Use
  Company Number: 2006071856

PATIENT
  Age: 70 Year
  Sex: Male
  Weight: 70 kg

DRUGS (12)
  1. ZYVOX [Suspect]
     Indication: STAPHYLOCOCCAL SEPSIS
     Dosage: 1200 MG (600 MG, 2 IN 1 D), INTRAVENOUS
     Route: 042
     Dates: start: 20060516, end: 20060526
  2. GANCICLOVIR [Suspect]
     Indication: CYTOMEGALOVIRUS COLITIS
     Dosage: 500 MG (500 MG, 1 IN 1 D), INTRAVENOUS
     Route: 042
     Dates: start: 20060511, end: 20060513
  3. PREDNISOLONE [Concomitant]
  4. PREDNISOLONE SODIUM SUCCINATE INJ [Concomitant]
  5. LANSOPRAZOLE [Concomitant]
  6. SELBEX (TEPRENONE) [Concomitant]
  7. NITRODERM [Concomitant]
  8. LOSARTAN POTASSIUM [Concomitant]
  9. VANCOMYCIN HYDROCHLORIDE [Concomitant]
  10. LAC B (LACTOBACILLUS BIFIDUS, LYOPHILIZED) [Concomitant]
  11. VENOGLOBULIN-I [Concomitant]
  12. ALBUMIN (HUMAN) [Concomitant]

REACTIONS (6)
  - APLASTIC ANAEMIA [None]
  - BONE MARROW FAILURE [None]
  - PANCYTOPENIA [None]
  - PNEUMONIA [None]
  - RESPIRATORY DISORDER [None]
  - URINE OUTPUT DECREASED [None]
